FAERS Safety Report 5115485-5 (Version None)
Quarter: 2006Q3

REPORT INFORMATION
  Report Type: 
  Country: None (occurrence: None)
  Receive Date: 20060927
  Receipt Date: 20060915
  Transmission Date: 20061208
  Serious: Yes (Death, Life-Threatening, Hospitalization)
  Sender: FDA-Public Use
  Company Number: NZ-JNJFOC-20060505333

PATIENT
  Sex: Female
  Weight: 52.5 kg

DRUGS (5)
  1. REMICADE [Suspect]
     Dosage: INFLIXIMAB THERAPY RESUMED FOR ANOTHER 18 MONTHS.
     Route: 042
  2. REMICADE [Suspect]
     Indication: RHEUMATOID ARTHRITIS
     Dosage: THE PATIENT RECEIVED INFLIXIMAB THERAPY FOR 18 MONTHS.  IT WAS THEN DISCONTINUED FOR 15 MONTHS.
     Route: 042
  3. METHOTREXATE [Concomitant]
     Dosage: DOSE GIVEN DURING AN INFLIXIMAB INFUSION
     Route: 030
  4. PREDNISONE [Concomitant]
     Dosage: DOSE GIVEN DURING AN INFLIXIMAB INFUSION
  5. ACETAMINOPHEN [Concomitant]

REACTIONS (5)
  - BACTEROIDES INFECTION [None]
  - COMA [None]
  - DENTAL CARIES [None]
  - SUBDURAL EMPYEMA [None]
  - TOOTH ABSCESS [None]
